FAERS Safety Report 8941820 (Version 1)
Quarter: 2012Q4

REPORT INFORMATION
  Report Type: 
  Country: US (occurrence: US)
  Receive Date: 20121203
  Receipt Date: 20121203
  Transmission Date: 20130627
  Serious: No
  Sender: FDA-Public Use
  Company Number: US-BAYER-2012-111888

PATIENT
  Sex: Female

DRUGS (2)
  1. ULTRAVIST [Suspect]
     Indication: PYELOGRAM INTRAVENOUS
     Dosage: UNK
     Dates: start: 201202
  2. CHEMOTHERAPEUTICS NOS [Concomitant]

REACTIONS (1)
  - Medical device complication [None]
